FAERS Safety Report 6417713-2 (Version None)
Quarter: 2009Q4

REPORT INFORMATION
  Report Type: 
  Country: None (occurrence: None)
  Receive Date: 20091028
  Receipt Date: 20091026
  Transmission Date: 20100525
  Serious: Yes (Other)
  Sender: FDA-Public Use
  Company Number: US-GENENTECH-242024

PATIENT
  Sex: Female

DRUGS (4)
  1. AVASTIN [Suspect]
     Indication: MACULAR DEGENERATION
     Dosage: UNK, UNKNOWN
     Route: 031
     Dates: start: 20060102
  2. LUCENTIS [Suspect]
     Indication: MACULAR DEGENERATION
  3. LISINOPRIL [Concomitant]
     Indication: DRUG USE FOR UNKNOWN INDICATION
  4. THYROID MEDICATION [Concomitant]
     Indication: HYPOTHYROIDISM

REACTIONS (2)
  - GASTROINTESTINAL DISORDER [None]
  - LIPOMA [None]
